FAERS Safety Report 5331782-2 (Version None)
Quarter: 2007Q2

REPORT INFORMATION
  Report Type: 
  Country: None (occurrence: None)
  Receive Date: 20070517
  Receipt Date: 20070507
  Transmission Date: 20071010
  Serious: Yes (Hospitalization)
  Sender: FDA-Public Use
  Company Number: TPA2007A00973

PATIENT
  Age: 8 Decade

DRUGS (4)
  1. PIOGLITAZONE HCL [Suspect]
     Indication: CEREBROVASCULAR ACCIDENT
     Dosage: SEE IMAGE
     Route: 048
  2. PIOGLITAZONE HCL [Suspect]
     Indication: DISEASE RECURRENCE
     Dosage: SEE IMAGE
     Route: 048
  3. PIOGLITAZONE HCL [Suspect]
     Indication: MYOCARDIAL INFARCTION
     Dosage: SEE IMAGE
     Route: 048
  4. PIOGLITAZONE HCL [Suspect]
     Indication: PROPHYLAXIS
     Dosage: SEE IMAGE
     Route: 048

REACTIONS (2)
  - FALL [None]
  - FEMORAL NECK FRACTURE [None]
